FAERS Safety Report 6674149-7 (Version None)
Quarter: 2010Q2

REPORT INFORMATION
  Report Type: 
  Country: None (occurrence: None)
  Receive Date: 20100409
  Receipt Date: 20100330
  Transmission Date: 20101027
  Serious: Yes (Hospitalization)
  Sender: FDA-Public Use
  Company Number: US-BRISTOL-MYERS SQUIBB COMPANY-15052830

PATIENT
  Age: 30 Year
  Sex: Female

DRUGS (13)
  1. EFAVIRENZ TABS [Suspect]
     Indication: HIV INFECTION
     Route: 048
     Dates: start: 20100224
  2. TRUVADA [Suspect]
     Indication: HIV INFECTION
     Dosage: 1DF-300/200 MG
     Route: 048
     Dates: start: 20100224
  3. BLINDED: MARAVIROC [Suspect]
     Indication: HIV INFECTION
     Route: 048
     Dates: start: 20100224
  4. BLINDED: PLACEBO [Suspect]
     Indication: HIV INFECTION
     Route: 048
     Dates: start: 20100224
  5. BACTRIM [Concomitant]
     Dates: start: 20100208
  6. BUSCOPAN [Concomitant]
     Dates: start: 20100208, end: 20100224
  7. STEMETIL [Concomitant]
     Dates: start: 20100208, end: 20100208
  8. BETAMETHASONE VALERATE [Concomitant]
     Dates: start: 20100211
  9. IMODIUM [Concomitant]
     Dates: start: 20100208, end: 20100214
  10. TUBERCULIN PURIFIED PROTEIN DERIVATIVE [Concomitant]
     Dates: start: 20100215, end: 20100215
  11. NYSTATIN [Concomitant]
     Dates: start: 20100211, end: 20100216
  12. ANTAZOLINE [Concomitant]
     Dates: start: 20100224
  13. TETRAHYDROZOLINE HCL [Concomitant]
     Dates: start: 20100224

REACTIONS (1)
  - GASTROENTERITIS [None]
